FAERS Safety Report 25152683 (Version 1)
Quarter: 2025Q2

REPORT INFORMATION
  Report Type: Spontaneous
  Country: SK (occurrence: SK)
  Receive Date: 20250402
  Receipt Date: 20250402
  Transmission Date: 20250716
  Serious: Yes (Hospitalization, Other)
  Sender: JAZZ
  Company Number: SK-JAZZ PHARMACEUTICALS-2025-SK-008139

PATIENT

DRUGS (5)
  1. CANNABIDIOL [Suspect]
     Active Substance: CANNABIDIOL
     Indication: Epilepsy
     Route: 048
     Dates: start: 202403
  2. VALPROATE [Concomitant]
     Active Substance: VALPROIC ACID
     Indication: Product used for unknown indication
  3. CLOBAZAM [Concomitant]
     Active Substance: CLOBAZAM
     Indication: Product used for unknown indication
  4. FENFLURAMINE [Concomitant]
     Active Substance: FENFLURAMINE
     Indication: Product used for unknown indication
  5. DIAZEPAM [Concomitant]
     Active Substance: DIAZEPAM
     Indication: Product used for unknown indication

REACTIONS (4)
  - Pneumonia [Unknown]
  - Influenza [Unknown]
  - Generalised tonic-clonic seizure [Unknown]
  - Therapeutic response unexpected [Unknown]
